FAERS Safety Report 4693387-6 (Version None)
Quarter: 2005Q2

REPORT INFORMATION
  Report Type: 
  Country: None (occurrence: None)
  Receive Date: 20050615
  Receipt Date: 20050601
  Transmission Date: 20051028
  Serious: Yes (Other)
  Sender: FDA-Public Use
  Company Number: USA050699437

PATIENT
  Age: 49 Year
  Sex: Female
  Weight: 80 kg

DRUGS (3)
  1. HUMULIN-HUMAN INSULIN (RDNA) [Suspect]
     Indication: DIABETES MELLITUS
     Dates: end: 20010101
  2. INSULIN [Suspect]
     Indication: DIABETES MELLITUS
     Dates: start: 19540101
  3. HUMALOG [Suspect]
     Indication: DIABETES MELLITUS
     Dates: start: 20010101

REACTIONS (5)
  - BLINDNESS [None]
  - BLOOD GLUCOSE INCREASED [None]
  - EYE HAEMORRHAGE [None]
  - PHARMACEUTICAL PRODUCT COMPLAINT [None]
  - RETINAL DETACHMENT [None]
